FAERS Safety Report 9713036 (Version 2)
Quarter: 2014Q2

REPORT INFORMATION
  Report Type: Spontaneous
  Country: US (occurrence: US)
  Receive Date: 20131126
  Receipt Date: 20140510
  Transmission Date: 20141212
  Serious: No
  Sender: FDA-Public Use
  Company Number: US-BRISTOL-MYERS SQUIBB COMPANY-19385186

PATIENT
  Age: 88 Year
  Sex: Female
  Weight: 60.77 kg

DRUGS (3)
  1. BYDUREON [Suspect]
     Indication: TYPE 2 DIABETES MELLITUS
     Dates: start: 201306
  2. JANUVIA [Concomitant]
  3. GLIPIZIDE [Concomitant]

REACTIONS (2)
  - Product quality issue [Unknown]
  - Injection site nodule [Unknown]
